FAERS Safety Report 25585197 (Version 2)
Quarter: 2025Q3

REPORT INFORMATION
  Report Type: Spontaneous
  Country: JP (occurrence: JP)
  Receive Date: 20250721
  Receipt Date: 20250811
  Transmission Date: 20251021
  Serious: Yes (Hospitalization, Other)
  Sender: ABBVIE
  Company Number: JP-TAKEDA-2025TJP007142

PATIENT
  Age: 84 Year
  Sex: Male

DRUGS (9)
  1. LEUPLIN [Suspect]
     Active Substance: LEUPROLIDE ACETATE
     Indication: Prostate cancer
     Dosage: 11.25 MILLIGRAM, Q3MONTHS, LEUPLIN SR FOR INJECTION KIT 11.25 MG
     Route: 058
     Dates: start: 20210901
  2. INDAPAMIDE [Concomitant]
     Active Substance: INDAPAMIDE
     Indication: Product used for unknown indication
     Route: 048
  3. CLOPIDOGREL BISULFATE [Concomitant]
     Active Substance: CLOPIDOGREL BISULFATE
     Indication: Product used for unknown indication
     Route: 048
  4. DULOXETINE HYDROCHLORIDE [Concomitant]
     Active Substance: DULOXETINE HYDROCHLORIDE
     Indication: Product used for unknown indication
     Route: 048
  5. VOGLIBOSE [Concomitant]
     Active Substance: VOGLIBOSE
     Indication: Product used for unknown indication
     Route: 048
  6. BICALUTAMIDE [Concomitant]
     Active Substance: BICALUTAMIDE
     Indication: Product used for unknown indication
     Route: 065
     Dates: start: 20210901
  7. LINAGLIPTIN [Concomitant]
     Active Substance: LINAGLIPTIN
     Indication: Product used for unknown indication
     Route: 048
  8. TRIAZOLAM [Concomitant]
     Active Substance: TRIAZOLAM
     Indication: Product used for unknown indication
     Route: 048
  9. AMLODIPINE BESYLATE\AZILSARTAN [Concomitant]
     Active Substance: AMLODIPINE BESYLATE\AZILSARTAN
     Indication: Product used for unknown indication
     Route: 048

REACTIONS (3)
  - Cerebral infarction [Recovered/Resolved]
  - Gastrointestinal polyp haemorrhage [Recovered/Resolved]
  - Lumbar vertebral fracture [Recovered/Resolved]

NARRATIVE: CASE EVENT DATE: 20220901
